FAERS Safety Report 7324612-0 (Version None)
Quarter: 2011Q1

REPORT INFORMATION
  Report Type: 
  Country: None (occurrence: None)
  Receive Date: 20110209
  Receipt Date: 20101123
  Transmission Date: 20110831
  Serious: No
  Sender: FDA-Public Use
  Company Number: 2010000075

PATIENT
  Age: 57 Year
  Sex: Female
  Weight: 54.4 kg

DRUGS (3)
  1. LISINOPRIL [Concomitant]
  2. ULESFIA [Suspect]
     Indication: LICE INFESTATION
     Dosage: SINGLE, TOPICAL
     Route: 061
     Dates: start: 20101115, end: 20101115
  3. VYTORIN [Concomitant]

REACTIONS (4)
  - APPLICATION SITE ERYTHEMA [None]
  - APPLICATION SITE IRRITATION [None]
  - APPLICATION SITE PRURITUS [None]
  - PAIN [None]
